FAERS Safety Report 21872296 (Version 3)
Quarter: 2024Q1

REPORT INFORMATION
  Report Type: Spontaneous
  Country: US (occurrence: US)
  Receive Date: 20230117
  Receipt Date: 20240322
  Transmission Date: 20240409
  Serious: No
  Sender: FDA-Public Use
  Company Number: US-PFIZER INC-2021136960

PATIENT
  Age: 85 Year
  Sex: Male
  Weight: 97.506 kg

DRUGS (2)
  1. VYNDAMAX [Suspect]
     Active Substance: TAFAMIDIS
     Indication: Cardiac amyloidosis
     Dosage: 61 MG, ALTERNATE DAY (TAKING HIS PILLS EVERY OTHER DAY)
  2. VYNDAMAX [Suspect]
     Active Substance: TAFAMIDIS
     Dosage: 1 DF, 1X/DAY (ONE PILL A DAY)
     Route: 048

REACTIONS (4)
  - Intentional product use issue [Unknown]
  - Sluggishness [Unknown]
  - Body height decreased [Unknown]
  - Illness [Unknown]
